FAERS Safety Report 23806758 (Version 1)
Quarter: 2024Q2

REPORT INFORMATION
  Report Type: Spontaneous
  Country: AE (occurrence: AE)
  Receive Date: 20240502
  Receipt Date: 20240502
  Transmission Date: 20240715
  Serious: Yes (Hospitalization)
  Sender: FDA-Public Use
  Company Number: AE-GLAXOSMITHKLINE-AE2024EME053923

PATIENT

DRUGS (2)
  1. BELIMUMAB [Suspect]
     Active Substance: BELIMUMAB
     Indication: Product used for unknown indication
     Dosage: 10 MG/KG, Q4W
     Route: 042
     Dates: start: 202112
  2. CELLCEPT [Concomitant]
     Active Substance: MYCOPHENOLATE MOFETIL
     Indication: Systemic lupus erythematosus
     Dosage: 1 G, BID
     Route: 048
     Dates: start: 2013

REACTIONS (4)
  - Viral infection [Recovered/Resolved]
  - Cough [Unknown]
  - Pyrexia [Unknown]
  - Acne [Unknown]

NARRATIVE: CASE EVENT DATE: 20221104
